FAERS Safety Report 7430053-8 (Version None)
Quarter: 2011Q2

REPORT INFORMATION
  Report Type: 
  Country: None (occurrence: None)
  Receive Date: 20110421
  Receipt Date: 20081116
  Transmission Date: 20111010
  Serious: Yes (Death, Hospitalization, Other)
  Sender: FDA-Public Use
  Company Number: US-BAYER-200838924NA

PATIENT
  Age: 71 Year
  Sex: Male
  Weight: 81.633 kg

DRUGS (30)
  1. TRASYLOL [Suspect]
  2. PEPCID [Concomitant]
     Dosage: 20 MG, QD
     Route: 048
  3. EPINEPHRINE [Concomitant]
     Dosage: UNK
     Route: 042
     Dates: start: 20060929, end: 20060929
  4. BUMEX [Concomitant]
     Dosage: 1MG PER HOUR
  5. MIDAZOLAM [Concomitant]
     Dosage: 5 MG, UNK
     Route: 042
     Dates: start: 20060929
  6. ADVAIR HFA [Concomitant]
  7. TRASYLOL [Suspect]
     Indication: MITRAL VALVE REPLACEMENT
     Dosage: 2,000,000 KIU PUMP PRIME
     Route: 042
     Dates: start: 20060929, end: 20060929
  8. NORVASC [Concomitant]
     Dosage: 10 MG, QD
     Route: 048
     Dates: start: 20060323, end: 20060101
  9. HEPARIN [Concomitant]
     Dosage: UNK
     Route: 042
     Dates: start: 20060929, end: 20060929
  10. ALPHAGAN [Concomitant]
     Route: 047
  11. COUMADIN [Concomitant]
     Dosage: 5 MG, QD
     Route: 048
  12. GABAPENTIN [Concomitant]
     Dosage: 300 MG
     Route: 048
     Dates: start: 20060711
  13. ISOSORB [Concomitant]
     Dosage: 20 MG, TID
     Route: 048
     Dates: start: 20060330
  14. TRUSOPT [Concomitant]
     Dosage: UNK
     Route: 047
     Dates: start: 20051031
  15. LASIX [Concomitant]
     Dosage: 40 MG, QD
     Route: 048
     Dates: start: 20000101, end: 20060101
  16. REGLAN [Concomitant]
     Dosage: 10 MG EVERY 6 HOURS
  17. CEFEPIME [Concomitant]
     Dosage: 2 GM EVERY 12 HOURS
     Route: 042
  18. DIGOXIN [Concomitant]
     Dosage: 0.125 MG
     Route: 048
     Dates: start: 20060605
  19. PROTAMINE SULFATE [Concomitant]
     Dosage: 350 MG
     Route: 042
     Dates: start: 20060929, end: 20060929
  20. PHENYLEPHRINE HCL [Concomitant]
     Dosage: UNK
     Route: 042
     Dates: start: 20060929, end: 20060929
  21. TRAVATAN [Concomitant]
     Dosage: UNK
     Route: 047
     Dates: start: 20060407
  22. DILANTIN [Concomitant]
     Dosage: 200 MG BID OTHER 1200 AND PM
     Route: 048
  23. HYDRALAZINE [Concomitant]
     Dosage: 50 MG, BID
     Dates: start: 20060120
  24. ASPIRIN [Concomitant]
     Dosage: 325 MG PER DAY
     Route: 048
  25. ADENOSINE [Concomitant]
     Dosage: UNK
     Route: 042
     Dates: start: 20050909
  26. TRASYLOL [Suspect]
     Indication: COX-MAZE PROCEDURE
  27. VANCOMYCIN [Concomitant]
  28. AMIODARONE [Concomitant]
     Dosage: 150 MG
     Route: 042
     Dates: start: 20060929, end: 20060929
  29. DILANTIN [Concomitant]
     Dosage: 100 MG, QOD
     Route: 048
     Dates: end: 20060101
  30. CARDIOLITE [Concomitant]
     Dosage: UNK
     Route: 042
     Dates: start: 20030508

REACTIONS (12)
  - STRESS [None]
  - ANHEDONIA [None]
  - RENAL FAILURE [None]
  - TOXIC SHOCK SYNDROME [None]
  - ANXIETY [None]
  - FEAR [None]
  - INJURY [None]
  - DEATH [None]
  - MULTI-ORGAN FAILURE [None]
  - UNEVALUABLE EVENT [None]
  - EMOTIONAL DISTRESS [None]
  - PAIN [None]
